FAERS Safety Report 9333537 (Version 1)
Quarter: 2013Q2

REPORT INFORMATION
  Report Type: Spontaneous
  Country: US (occurrence: US)
  Receive Date: 20130606
  Receipt Date: 20130606
  Transmission Date: 20140414
  Serious: No
  Sender: FDA-Public Use
  Company Number: US-AMGEN-USASP2013013529

PATIENT
  Age: 72 Year
  Sex: Male

DRUGS (2)
  1. XGEVA [Suspect]
     Indication: BREAST CANCER METASTATIC
  2. FASLODEX                           /01503001/ [Concomitant]
     Route: 030

REACTIONS (1)
  - Incorrect route of drug administration [Unknown]
